FAERS Safety Report 5672820-7 (Version None)
Quarter: 2008Q1

REPORT INFORMATION
  Report Type: 
  Country: None (occurrence: None)
  Receive Date: 20080319
  Receipt Date: 20070305
  Transmission Date: 20080703
  Serious: No
  Sender: FDA-Public Use
  Company Number: US-KINGPHARMUSA00001-K200700258

PATIENT
  Sex: Male

DRUGS (8)
  1. ALTACE [Suspect]
     Indication: HYPERTENSION
     Dosage: 2.5 MG, BID
     Route: 048
     Dates: start: 20020101, end: 20061101
  2. ALTACE [Suspect]
     Dosage: 5 MG, BID
     Route: 048
     Dates: start: 20061101
  3. ALTACE [Suspect]
     Dosage: 2.5 MG, BID
     Route: 048
     Dates: end: 20070101
  4. ANTI-INFLAMMATORY (NOS) [Concomitant]
  5. LIPITOR [Concomitant]
  6. HYTRIN [Concomitant]
  7. ASPIRIN [Concomitant]
  8. SLEEP INDUCER (NOS) [Concomitant]

REACTIONS (2)
  - DRUG INEFFECTIVE [None]
  - WEIGHT INCREASED [None]
